FAERS Safety Report 9971835 (Version 3)
Quarter: 2019Q1

REPORT INFORMATION
  Report Type: Spontaneous
  Country: SE (occurrence: SE)
  Receive Date: 20140303
  Receipt Date: 20190125
  Transmission Date: 20190418
  Serious: Yes (Hospitalization)
  Sender: FDA-Public Use
  Company Number: SE-PFIZER INC-2014057952

PATIENT
  Age: 79 Year
  Sex: Female

DRUGS (1)
  1. MORPHINE SULFATE. [Suspect]
     Active Substance: MORPHINE SULFATE
     Indication: NEURITIS
     Dosage: UNK

REACTIONS (4)
  - Polyneuropathy chronic [Unknown]
  - Drug ineffective [Unknown]
  - Paralysis [Unknown]
  - Nausea [Unknown]
